FAERS Safety Report 23845126 (Version 1)
Quarter: 2024Q2

REPORT INFORMATION
  Report Type: Spontaneous
  Country: US (occurrence: US)
  Receive Date: 20240511
  Receipt Date: 20240511
  Transmission Date: 20240715
  Serious: No
  Sender: FDA-Public Use
  Company Number: US-CIPLA LTD.-2023US07973

PATIENT

DRUGS (2)
  1. ALBUTEROL [Suspect]
     Active Substance: ALBUTEROL
     Indication: Pneumonia
     Dosage: 2 PUFFS, TID (THREE TIMES A DAY)
     Dates: start: 20231208
  2. ALBUTEROL [Suspect]
     Active Substance: ALBUTEROL
     Dosage: ABOUT 3 PUFFS A DAY
     Route: 065

REACTIONS (7)
  - Dysarthria [Not Recovered/Not Resolved]
  - Off label use [Unknown]
  - Device delivery system issue [Unknown]
  - Device malfunction [Unknown]
  - Product container seal issue [Unknown]
  - Suspected product tampering [Unknown]
  - Device issue [Unknown]

NARRATIVE: CASE EVENT DATE: 20231208
